FAERS Safety Report 12600247 (Version 1)
Quarter: 2016Q3

REPORT INFORMATION
  Report Type: Report from Study
  Country: AT (occurrence: AT)
  Receive Date: 20160727
  Receipt Date: 20160727
  Transmission Date: 20161109
  Serious: Yes (Hospitalization, Other)
  Sender: FDA-Public Use
  Company Number: AT-TEVA-679211ISR

PATIENT
  Age: 20 Year
  Sex: Female

DRUGS (2)
  1. OLANZAPINE. [Suspect]
     Active Substance: OLANZAPINE
     Route: 065
  2. DOXEPIN [Suspect]
     Active Substance: DOXEPIN
     Route: 065

REACTIONS (1)
  - Acute hepatic failure [Recovered/Resolved]
